FAERS Safety Report 17434549 (Version 14)
Quarter: 2022Q4

REPORT INFORMATION
  Report Type: Spontaneous
  Country: IN (occurrence: IN)
  Receive Date: 20200219
  Receipt Date: 20221123
  Transmission Date: 20230112
  Serious: Yes (Other)
  Sender: FDA-Public Use
  Company Number: IN-PFIZER INC-2020021101

PATIENT
  Age: 74 Year
  Sex: Female
  Weight: 84.2 kg

DRUGS (8)
  1. PALBOCICLIB [Suspect]
     Active Substance: PALBOCICLIB
     Indication: Breast cancer metastatic
     Dosage: 125 MG, CYCLIC (1X/DAY FOR 21 DAYS, THEN GAP OF 7 DAYS)
     Route: 048
     Dates: start: 20190425
  2. PALBOCICLIB [Suspect]
     Active Substance: PALBOCICLIB
     Dosage: 125 MG, CYCLIC (1X/DAY FOR 21 DAYS, THEN GAP OF 7 DAYS)
     Route: 048
     Dates: start: 20210717
  3. LETROZOLE [Concomitant]
     Active Substance: LETROZOLE
     Indication: Breast cancer metastatic
     Dosage: 2.5 MG, 1X/DAY
  4. CALCIUM CARBONATE\CHOLECALCIFEROL [Concomitant]
     Active Substance: CALCIUM CARBONATE\CHOLECALCIFEROL
     Dosage: 1 DF, DAILY
  5. OSTEOFOS [ALENDRONATE SODIUM] [Concomitant]
     Dosage: 70 MG, WEEKLY
  6. FASLODEX [Concomitant]
     Active Substance: FULVESTRANT
     Dosage: 250 MG, MONTHLY
     Route: 030
  7. XGEVA [Concomitant]
     Active Substance: DENOSUMAB
     Dosage: 120 MG
     Route: 058
  8. DULANE [Concomitant]
     Dosage: 30 MG AT BEDTIME

REACTIONS (17)
  - Blood pressure increased [Not Recovered/Not Resolved]
  - Red blood cell count decreased [Unknown]
  - Spinal compression fracture [Unknown]
  - Osteoporosis [Unknown]
  - Neoplasm progression [Unknown]
  - Red cell distribution width increased [Unknown]
  - White blood cell count decreased [Unknown]
  - Neutrophil count decreased [Unknown]
  - Neutrophil percentage decreased [Unknown]
  - Haematocrit decreased [Unknown]
  - Monocyte percentage increased [Unknown]
  - Mean cell volume increased [Unknown]
  - Mean cell haemoglobin increased [Unknown]
  - Lymphadenopathy [Unknown]
  - Inappropriate schedule of product administration [Unknown]
  - Body mass index increased [Unknown]
  - Hepatic steatosis [Unknown]

NARRATIVE: CASE EVENT DATE: 20200106
